FAERS Safety Report 17402868 (Version 4)
Quarter: 2022Q1

REPORT INFORMATION
  Report Type: Spontaneous
  Country: US (occurrence: US)
  Receive Date: 20200211
  Receipt Date: 20220216
  Transmission Date: 20220424
  Serious: Yes (Other)
  Sender: FDA-Public Use
  Company Number: US-PFIZER INC-2020058581

PATIENT
  Age: 76 Year
  Sex: Female

DRUGS (1)
  1. XELJANZ [Suspect]
     Active Substance: TOFACITINIB CITRATE
     Dosage: 5 MG, (TAKE 1 TABLET BY MOUTH TWICE A DAY)
     Route: 048

REACTIONS (10)
  - Rheumatoid arthritis [Unknown]
  - Nausea [Unknown]
  - Musculoskeletal disorder [Unknown]
  - Hypoacusis [Unknown]
  - Arthralgia [Unknown]
  - Pain in extremity [Unknown]
  - Joint stiffness [Unknown]
  - Joint swelling [Unknown]
  - Blood calcium increased [Unknown]
  - Blood urea nitrogen/creatinine ratio increased [Unknown]
